FAERS Safety Report 23946396 (Version 1)
Quarter: 2024Q2

REPORT INFORMATION
  Report Type: Spontaneous
  Country: CA (occurrence: CA)
  Receive Date: 20240606
  Receipt Date: 20240606
  Transmission Date: 20240716
  Serious: Yes (Hospitalization, Other)
  Sender: FDA-Public Use
  Company Number: CA-TEVA-VS-3204057

PATIENT
  Sex: Male

DRUGS (12)
  1. QUETIAPINE FUMARATE [Suspect]
     Active Substance: QUETIAPINE FUMARATE
     Indication: Schizoaffective disorder bipolar type
     Route: 048
  2. ARIPIPRAZOLE [Suspect]
     Active Substance: ARIPIPRAZOLE
     Indication: Schizoaffective disorder bipolar type
     Route: 065
  3. HALOPERIDOL [Suspect]
     Active Substance: HALOPERIDOL
     Indication: Schizoaffective disorder bipolar type
     Route: 065
  4. OLANZAPINE [Suspect]
     Active Substance: OLANZAPINE
     Indication: Schizoaffective disorder bipolar type
     Route: 065
  5. RISPERIDONE [Suspect]
     Active Substance: RISPERIDONE
     Indication: Schizoaffective disorder bipolar type
     Route: 048
  6. CLOZAPINE [Suspect]
     Active Substance: CLOZAPINE
     Indication: Schizoaffective disorder bipolar type
     Route: 065
  7. FLUPHENAZINE [Suspect]
     Active Substance: FLUPHENAZINE
     Indication: Schizoaffective disorder bipolar type
     Route: 065
  8. LOXAPINE SUCCINATE [Suspect]
     Active Substance: LOXAPINE SUCCINATE
     Indication: Schizoaffective disorder bipolar type
     Route: 065
  9. PALIPERIDONE [Suspect]
     Active Substance: PALIPERIDONE
     Indication: Schizoaffective disorder bipolar type
     Route: 065
  10. RISPERIDONE [Suspect]
     Active Substance: RISPERIDONE
     Indication: Schizoaffective disorder bipolar type
     Route: 065
  11. TRIFLUOPERAZINE [Suspect]
     Active Substance: TRIFLUOPERAZINE HYDROCHLORIDE
     Indication: Schizoaffective disorder bipolar type
     Route: 065
  12. DIVALPROEX SODIUM [Suspect]
     Active Substance: DIVALPROEX SODIUM
     Indication: Schizoaffective disorder bipolar type
     Route: 065

REACTIONS (2)
  - Sedation [Unknown]
  - Drug ineffective [Unknown]
